FAERS Safety Report 26108915 (Version 1)
Quarter: 2025Q4

REPORT INFORMATION
  Report Type: Spontaneous
  Country: US (occurrence: US)
  Receive Date: 20251201
  Receipt Date: 20251201
  Transmission Date: 20260118
  Serious: Yes (Other)
  Sender: LNK INTERNATIONAL, INC.
  Company Number: US-LNK INTERNATIONAL, INC.-2189545

PATIENT
  Sex: Male

DRUGS (1)
  1. NIGHTTIME SLEEP AID (DOXYLAMINE SUCCINATE) [Suspect]
     Active Substance: DOXYLAMINE SUCCINATE
     Indication: Insomnia

REACTIONS (2)
  - Panic attack [Unknown]
  - Heart rate increased [Unknown]
